FAERS Safety Report 5664840-3 (Version None)
Quarter: 2008Q1

REPORT INFORMATION
  Report Type: 
  Country: None (occurrence: None)
  Receive Date: 20080314
  Receipt Date: 20080303
  Transmission Date: 20080703
  Serious: No
  Sender: FDA-Public Use
  Company Number: US-BAXTER-2008BH002093

PATIENT

DRUGS (2)
  1. HEPARIN SODIUM [Suspect]
     Indication: PROPHYLAXIS
     Route: 065
  2. HEPARIN SODIUM [Suspect]
     Route: 065

REACTIONS (3)
  - LIP SWELLING [None]
  - SPEECH DISORDER [None]
  - SWELLING FACE [None]
